FAERS Safety Report 5593215-0 (Version None)
Quarter: 2008Q1

REPORT INFORMATION
  Report Type: 
  Country: None (occurrence: None)
  Receive Date: 20080116
  Receipt Date: 20080107
  Transmission Date: 20080703
  Serious: Yes (Other)
  Sender: FDA-Public Use
  Company Number: US-AMGEN-QUU259590

PATIENT
  Sex: Female

DRUGS (1)
  1. ENBREL [Suspect]
     Indication: RHEUMATOID ARTHRITIS
     Route: 058
     Dates: start: 19990107

REACTIONS (4)
  - CERVIX CARCINOMA [None]
  - COAGULATION TIME SHORTENED [None]
  - PELVIC PAIN [None]
  - RENAL CYST [None]
